FAERS Safety Report 8785254 (Version 2)
Quarter: 2013Q4

REPORT INFORMATION
  Report Type: Spontaneous
  Country: US (occurrence: US)
  Receive Date: 20120914
  Receipt Date: 20131101
  Transmission Date: 20140711
  Serious: No
  Sender: FDA-Public Use
  Company Number: US-009507513-1208USA002454

PATIENT
  Sex: Male
  Weight: 112.93 kg

DRUGS (5)
  1. VICTRELIS [Suspect]
     Dosage: 4 CAPSULES TID EVERY 7 TO 9 HOURS WITH FOOD FOR 28 DAYS
     Route: 048
  2. PEGINTRON [Suspect]
     Dosage: PEGINTRON KIT 120 RP (REDIPEN)
  3. REBETOL [Suspect]
     Route: 048
  4. MELOXICAM [Concomitant]
     Route: 048
  5. DIOVAN [Concomitant]
     Route: 048

REACTIONS (7)
  - Dizziness [Unknown]
  - Oropharyngeal pain [Unknown]
  - Lethargy [Unknown]
  - Influenza like illness [Unknown]
  - Weight decreased [Unknown]
  - Pollakiuria [Unknown]
  - Dyspnoea [Unknown]
